FAERS Safety Report 12620716 (Version 2)
Quarter: 2017Q1

REPORT INFORMATION
  Report Type: Spontaneous
  Country: IT (occurrence: IT)
  Receive Date: 20160804
  Receipt Date: 20170122
  Transmission Date: 20170428
  Serious: Yes (Life-Threatening)
  Sender: FDA-Public Use
  Company Number: IT-ROCHE-1806397

PATIENT
  Age: 50 Year
  Sex: Male

DRUGS (5)
  1. RIVOTRIL [Suspect]
     Active Substance: CLONAZEPAM
     Indication: PARKINSONISM
     Dosage: 2.5 MG/ML ORAL DROPS, SOLUTION^ 10 ML BOTTLE
     Route: 048
  2. CLOZAPINE. [Interacting]
     Active Substance: CLOZAPINE
     Indication: BIPOLAR DISORDER
     Route: 048
  3. ZARELIS [Interacting]
     Active Substance: VENLAFAXINE HYDROCHLORIDE
     Indication: DEPRESSION
     Dosage: 150 MG -28 TABLETS IN A PVC/PCTFE/AL BLISTER PACK
     Route: 048
  4. ALFUZOSIN HYDROCHLORIDE. [Concomitant]
     Active Substance: ALFUZOSIN HYDROCHLORIDE
  5. OXYBUTYNIN HYDROCHLORIDE [Concomitant]
     Active Substance: OXYBUTYNIN CHLORIDE
     Indication: NEUROGENIC BLADDER

REACTIONS (5)
  - Dyspnoea exertional [Recovered/Resolved]
  - Presyncope [Recovered/Resolved]
  - Sinus tachycardia [Recovered/Resolved]
  - Drug interaction [Unknown]
  - Pulmonary embolism [Recovered/Resolved]

NARRATIVE: CASE EVENT DATE: 20160128
